FAERS Safety Report 7745603-1 (Version None)
Quarter: 2011Q3

REPORT INFORMATION
  Report Type: 
  Country: None (occurrence: None)
  Receive Date: 20110829
  Receipt Date: 20110811
  Transmission Date: 20111222
  Serious: Yes (Death, Hospitalization)
  Sender: FDA-Public Use
  Company Number: DSA_47407_2011

PATIENT
  Age: 42 Year
  Sex: Male

DRUGS (5)
  1. FUROSEMIDE [Concomitant]
  2. ENALAPRIL MALEATE [Suspect]
     Indication: PRODUCT USED FOR UNKNOWN INDICATION
     Dosage: (20 MG QD) (10 MG QD)
     Dates: start: 20100101
  3. SPIRONOLACTONE [Concomitant]
  4. CARVEDILOL [Concomitant]
  5. DIGOXIN [Concomitant]

REACTIONS (23)
  - CARDIAC MURMUR [None]
  - DYSPNOEA [None]
  - BLOOD CREATININE INCREASED [None]
  - DIARRHOEA [None]
  - MITRAL VALVE INCOMPETENCE [None]
  - CARDIAC FAILURE [None]
  - HAEMOPTYSIS [None]
  - COUGH [None]
  - BLOOD POTASSIUM DECREASED [None]
  - TRANSPLANT [None]
  - THROMBOPHLEBITIS SUPERFICIAL [None]
  - RESPIRATORY FAILURE [None]
  - ELECTROCARDIOGRAM ST SEGMENT ELEVATION [None]
  - BRADYCARDIA [None]
  - PLEURAL EFFUSION [None]
  - SEPSIS [None]
  - ANAEMIA [None]
  - THROMBOCYTOPENIA [None]
  - OEDEMA PERIPHERAL [None]
  - PULMONARY ARTERIAL HYPERTENSION [None]
  - MULTI-ORGAN FAILURE [None]
  - CONDITION AGGRAVATED [None]
  - CARDIAC ARREST [None]
